FAERS Safety Report 7142341-3 (Version None)
Quarter: 2010Q4

REPORT INFORMATION
  Report Type: 
  Country: None (occurrence: None)
  Receive Date: 20101207
  Receipt Date: 20101129
  Transmission Date: 20110411
  Serious: Yes (Hospitalization, Other)
  Sender: FDA-Public Use
  Company Number: US-ELI_LILLY_AND_COMPANY-US201002006319

PATIENT
  Sex: Female

DRUGS (23)
  1. FORTEO [Suspect]
     Indication: OSTEOPOROSIS
     Dosage: 20 UG, DAILY (1/D)
     Route: 065
     Dates: start: 20091001
  2. FORTEO [Suspect]
     Dosage: 20 UG, DAILY (1/D)
  3. CYMBALTA [Concomitant]
     Indication: ARTHRITIS
     Dosage: 60 MG, DAILY (1/D)
     Route: 065
  4. SYNTHROID [Concomitant]
     Dosage: 75 UG, DAILY (1/D)
     Route: 065
  5. NEXIUM [Concomitant]
     Dosage: 40 MG, DAILY (1/D)
     Route: 065
  6. ATENOLOL [Concomitant]
     Dosage: 25 MG, 2/D
     Route: 065
  7. VITAMINS [Concomitant]
     Dosage: UNK, DAILY (1/D)
     Route: 065
  8. TIMOLOL [Concomitant]
     Indication: GLAUCOMA
     Dosage: UNK, DAILY (1/D)
     Route: 047
  9. PREDNISONE [Concomitant]
     Dosage: 5 MG, OTHER
     Route: 065
  10. LIDOCAINE [Concomitant]
     Dosage: UNK, UNKNOWN
     Route: 065
  11. IMITREX [Concomitant]
     Indication: MIGRAINE
     Dosage: 100 MG, AS NEEDED
     Route: 065
  12. DONNATAL [Concomitant]
     Indication: NAUSEA
     Dosage: UNK, AS NEEDED
     Route: 065
  13. MIACALCIN [Concomitant]
     Dosage: UNK, UNKNOWN
     Route: 065
  14. CITRICAL [Concomitant]
     Dosage: UNK, UNKNOWN
     Route: 065
  15. VITAMIN D [Concomitant]
     Dosage: UNK, UNKNOWN
     Route: 065
  16. CENTRUM SILVER [Concomitant]
     Dosage: UNK, UNKNOWN
     Route: 065
  17. CELEBREX [Concomitant]
     Dosage: 200 MG, DAILY (1/D)
  18. MS CONTIN [Concomitant]
     Dosage: 15 MG, EACH EVENING
  19. TYLENOL W/ CODEINE NO. 3 [Concomitant]
     Dosage: UNK, AS NEEDED
  20. ZOFRAN [Concomitant]
     Dosage: UNK, AS NEEDED
     Route: 065
  21. CALCIUM [Concomitant]
     Dosage: UNK, DAILY (1/D)
  22. MAXZIDE [Concomitant]
  23. POTASSIUM CHLORIDE [Concomitant]

REACTIONS (7)
  - DRY THROAT [None]
  - FALL [None]
  - LUNG ADENOCARCINOMA [None]
  - NAUSEA [None]
  - PAIN [None]
  - VOMITING [None]
  - WRIST FRACTURE [None]
